FAERS Safety Report 4790741-9 (Version None)
Quarter: 2005Q4

REPORT INFORMATION
  Report Type: 
  Country: None (occurrence: None)
  Receive Date: 20051006
  Receipt Date: 20050929
  Transmission Date: 20060501
  Serious: Yes (Other)
  Sender: FDA-Public Use
  Company Number: HU-MERCK-0510USA00163

PATIENT
  Sex: Female
  Weight: 3 kg

DRUGS (7)
  1. HYDROCORTONE [Suspect]
     Indication: SEPTIC SHOCK
  2. DROTRECOGIN ALFA [Concomitant]
     Indication: SEPTIC SHOCK
  3. DOBUTAMINE [Concomitant]
     Indication: SEPTIC SHOCK
  4. NOREPINEPHRINE HYDROCHLORIDE [Concomitant]
     Indication: SEPTIC SHOCK
  5. FUROSEMIDE [Concomitant]
     Indication: SEPTIC SHOCK
  6. MEROPENEM [Concomitant]
     Indication: SEPTIC SHOCK
  7. [THERAPY UNSPECIFIED] [Concomitant]
     Indication: SEPTIC SHOCK

REACTIONS (4)
  - CAESAREAN SECTION [None]
  - DRUG EXPOSURE DURING PREGNANCY [None]
  - FOETAL DISTRESS SYNDROME [None]
  - UMBILICAL CORD AROUND NECK [None]
